FAERS Safety Report 19780680 (Version 1)
Quarter: 2021Q3

REPORT INFORMATION
  Report Type: Spontaneous
  Country: US (occurrence: US)
  Receive Date: 20210902
  Receipt Date: 20210902
  Transmission Date: 20211014
  Serious: No
  Sender: FDA-Public Use
  Company Number: US-AMGEN-USASP2021134268

PATIENT
  Sex: Female

DRUGS (7)
  1. GABAPENTIN. [Concomitant]
     Active Substance: GABAPENTIN
     Dosage: 800 MILLIGRAM
  2. ENBREL [Suspect]
     Active Substance: ETANERCEPT
     Indication: OSTEOARTHRITIS
     Dosage: 50 MILLIGRAM, QWK
     Route: 058
  3. METFORMIN HCL [Concomitant]
     Active Substance: METFORMIN HYDROCHLORIDE
     Dosage: 1000 MILLIGRAM
  4. MOBIC [Concomitant]
     Active Substance: MELOXICAM
     Dosage: 15 MILLIGRAM
  5. VITAMIN D [ERGOCALCIFEROL] [Concomitant]
     Active Substance: ERGOCALCIFEROL
     Dosage: 25 MICROGRAM
  6. IBU [Concomitant]
     Active Substance: IBUPROFEN
     Dosage: 800 MILLIGRAM
  7. OXYCODONE AND ACETAMINOPHEN [Concomitant]
     Active Substance: ACETAMINOPHEN\OXYCODONE HYDROCHLORIDE
     Dosage: 5?325 MG

REACTIONS (2)
  - Off label use [Unknown]
  - Depression [Not Recovered/Not Resolved]
